FAERS Safety Report 10434736 (Version 1)
Quarter: 2014Q2

REPORT INFORMATION
  Report Type: Spontaneous
  Country: US (occurrence: None)
  Receive Date: 20140514
  Receipt Date: 20140514
  Transmission Date: 20141212
  Serious: Yes (Hospitalization)
  Sender: FDA-Public Use
  Company Number: 101035U

PATIENT
  Sex: Female
  Weight: 52.4 kg

DRUGS (7)
  1. CIMZIA [Suspect]
     Indication: CROHN^S DISEASE
     Dosage: 200 MG 1X/2 WEEKS
     Dates: start: 2013, end: 2013
  2. OMEPRAZOLE [Concomitant]
  3. VITAMIN B12 [Concomitant]
  4. ZOFRAN [Concomitant]
  5. VITAMIN D NOS [Concomitant]
  6. PRENATAL VITAMINS [Concomitant]
  7. VITAMIN B-COMPLEX [Concomitant]

REACTIONS (4)
  - Crohn^s disease [None]
  - Injection site erythema [None]
  - Injection site irritation [None]
  - Device issue [None]
